FAERS Safety Report 15735016 (Version 1)
Quarter: 2018Q4

REPORT INFORMATION
  Report Type: Spontaneous
  Country: IN (occurrence: IN)
  Receive Date: 20181218
  Receipt Date: 20181218
  Transmission Date: 20190205
  Serious: Yes (Hospitalization)
  Sender: FDA-Public Use
  Company Number: IN-HERITAGE PHARMACEUTICALS-2018HTG00457

PATIENT
  Age: 30 Year
  Sex: Male

DRUGS (1)
  1. ALPRAZOLAM. [Suspect]
     Active Substance: ALPRAZOLAM
     Dosage: UNK UNK, ONCE
     Route: 048

REACTIONS (8)
  - Atrial fibrillation [Recovering/Resolving]
  - Left ventricular dysfunction [Recovering/Resolving]
  - Papillary muscle disorder [Recovering/Resolving]
  - Coronary no-reflow phenomenon [Recovering/Resolving]
  - Pulmonary oedema [Recovered/Resolved]
  - Overdose [Recovered/Resolved]
  - Mitral valve incompetence [Recovered/Resolved]
  - Acute coronary syndrome [Recovering/Resolving]
